APPROVED DRUG PRODUCT: VAGILIA
Active Ingredient: TRIPLE SULFA (SULFABENZAMIDE;SULFACETAMIDE;SULFATHIAZOLE)
Strength: 3.7%;2.86%;3.42%
Dosage Form/Route: CREAM;VAGINAL
Application: A088821 | Product #001
Applicant: COSETTE PHARMACEUTICALS INC
Approved: Nov 9, 1987 | RLD: No | RS: No | Type: DISCN